FAERS Safety Report 18631125 (Version 1)
Quarter: 2020Q4

REPORT INFORMATION
  Report Type: Spontaneous
  Country: US (occurrence: US)
  Receive Date: 20201218
  Receipt Date: 20201218
  Transmission Date: 20210114
  Serious: No
  Sender: FDA-Public Use
  Company Number: US-JNJFOC-20201200541

PATIENT
  Age: 73 Year
  Sex: Female
  Weight: 75.36 kg

DRUGS (1)
  1. WOMENS ROGAINE [Suspect]
     Active Substance: MINOXIDIL
     Indication: ALOPECIA
     Dosage: HALF A DROPPER SOMETIMES?PRODUCT LAST USED DATE: /NOV/2020
     Route: 061
     Dates: start: 202008

REACTIONS (3)
  - Application site eczema [Recovered/Resolved]
  - Application site rash [Recovered/Resolved]
  - Underdose [Unknown]

NARRATIVE: CASE EVENT DATE: 2020
